FAERS Safety Report 18209788 (Version 1)
Quarter: 2020Q3

REPORT INFORMATION
  Report Type: Spontaneous
  Country: US (occurrence: US)
  Receive Date: 20200828
  Receipt Date: 20200828
  Transmission Date: 20201103
  Serious: Yes (Other)
  Sender: FDA-Public Use
  Company Number: US-BIOGEN-2020BI00916415

PATIENT
  Sex: Male

DRUGS (2)
  1. CYMBALTA [Concomitant]
     Active Substance: DULOXETINE HYDROCHLORIDE
     Indication: PRODUCT USED FOR UNKNOWN INDICATION
     Route: 065
  2. TECFIDERA [Suspect]
     Active Substance: DIMETHYL FUMARATE
     Indication: MULTIPLE SCLEROSIS
     Route: 065
     Dates: start: 20180719, end: 2020

REACTIONS (8)
  - Anxiety [Unknown]
  - Food allergy [Unknown]
  - Feeling abnormal [Unknown]
  - Memory impairment [Unknown]
  - Multiple sclerosis [Unknown]
  - Major depression [Unknown]
  - Dyspnoea [Unknown]
  - Post-traumatic stress disorder [Unknown]
